FAERS Safety Report 9547938 (Version 1)
Quarter: 2013Q3

REPORT INFORMATION
  Report Type: Spontaneous
  Country: US (occurrence: None)
  Receive Date: 20130923
  Receipt Date: 20130923
  Transmission Date: 20140515
  Serious: Yes (Other)
  Sender: FDA-Public Use
  Company Number: None

PATIENT
  Age: 2 Year
  Sex: Male
  Weight: 14.4 kg

DRUGS (9)
  1. GAMMAGARD LIQUID [Suspect]
     Indication: DRUG THERAPY
     Dates: start: 20130905
  2. PROGRAF [Concomitant]
  3. CELLCEPT [Concomitant]
  4. BACTRIM [Concomitant]
  5. MULTIVITAMIN [Concomitant]
  6. FUROSEMIDE [Concomitant]
  7. NYSTATIN [Concomitant]
  8. ASPIRIN [Concomitant]
  9. RANITADINE [Concomitant]

REACTIONS (3)
  - Nausea [None]
  - Headache [None]
  - Vomiting [None]
